FAERS Safety Report 14977255 (Version 1)
Quarter: 2018Q2

REPORT INFORMATION
  Report Type: Spontaneous
  Country: DE (occurrence: DE)
  Receive Date: 20180606
  Receipt Date: 20180606
  Transmission Date: 20180711
  Serious: Yes (Life-Threatening, Hospitalization, Other)
  Sender: FDA-Public Use
  Company Number: DE-UNICHEM PHARMACEUTICALS (USA) INC-UCM201805-000129

PATIENT
  Age: 65 Year
  Sex: Male

DRUGS (10)
  1. FUROSEMIDE. [Suspect]
     Active Substance: FUROSEMIDE
  2. METRONIDAZOLE. [Suspect]
     Active Substance: METRONIDAZOLE
  3. AMSACRINE [Suspect]
     Active Substance: AMSACRINE
     Indication: CARDIAC ARREST
  4. MELPHALAN. [Concomitant]
     Active Substance: MELPHALAN
  5. CLEMASTINE [Suspect]
     Active Substance: CLEMASTINE
  6. LEVOFLOXACIN. [Suspect]
     Active Substance: LEVOFLOXACIN
  7. FLUDARABINE [Concomitant]
     Active Substance: FLUDARABINE PHOSPHATE
  8. AMPHOTERICIN B. [Suspect]
     Active Substance: AMPHOTERICIN B
  9. ONDANSETRON [Suspect]
     Active Substance: ONDANSETRON
  10. BUSULFAN. [Concomitant]
     Active Substance: BUSULFAN

REACTIONS (1)
  - Electrocardiogram QT prolonged [Recovered/Resolved]
